FAERS Safety Report 15475959 (Version 2)
Quarter: 2018Q4

REPORT INFORMATION
  Report Type: Spontaneous
  Country: DE (occurrence: DE)
  Receive Date: 20181009
  Receipt Date: 20181210
  Transmission Date: 20190205
  Serious: Yes (Hospitalization)
  Sender: FDA-Public Use
  Company Number: PHHY2018DE117145

PATIENT
  Age: 58 Year
  Sex: Male
  Weight: 84 kg

DRUGS (16)
  1. ZOMETA [Concomitant]
     Active Substance: ZOLEDRONIC ACID
     Indication: METASTASES TO BONE
     Dosage: 4 MG, QMO (0.1333 MILLIGRAM)
     Route: 041
     Dates: start: 20161205, end: 20170529
  2. GRANISETRON [Concomitant]
     Active Substance: GRANISETRON
     Indication: PROPHYLAXIS
     Dosage: 3 MG, UNK
     Route: 041
  3. DEXAMETHASONE. [Concomitant]
     Active Substance: DEXAMETHASONE
     Indication: PROPHYLAXIS
     Dosage: 8 MG, UNK
     Route: 041
  4. ONDANSETRON [Concomitant]
     Active Substance: ONDANSETRON
     Indication: PROPHYLAXIS
     Dosage: 8 MG, UNK
     Route: 048
  5. ABRAXANE [Suspect]
     Active Substance: PACLITAXEL
     Indication: NON-SMALL CELL LUNG CANCER
     Dosage: 100 MG/M2, QD
     Route: 041
     Dates: start: 20161220
  6. METAMIZOLE [Concomitant]
     Active Substance: METAMIZOLE
     Indication: METASTASES TO BONE
     Dosage: 25 MG, UNK
     Route: 041
  7. MOTILIUM [Concomitant]
     Active Substance: DOMPERIDONE
     Indication: PROPHYLAXIS
     Dosage: 2 ML, UNK
     Route: 065
  8. CEFUROXIM [Concomitant]
     Active Substance: CEFUROXIME
     Indication: INFLAMMATION
     Dosage: 1000 MG
     Route: 048
     Dates: start: 20170419, end: 20170423
  9. ABRAXANE [Suspect]
     Active Substance: PACLITAXEL
     Dosage: 100 MG/M2, QD
     Route: 041
     Dates: start: 20170323, end: 20170330
  10. LONQUEX [Concomitant]
     Active Substance: LIPEGFILGRASTIM
     Indication: PROPHYLAXIS
     Route: 065
  11. PHENYTOIN. [Concomitant]
     Active Substance: PHENYTOIN
     Indication: PROPHYLAXIS
     Dosage: 100 MG, QD
     Route: 048
  12. EMEND [Concomitant]
     Active Substance: APREPITANT
     Indication: PROPHYLAXIS
     Dosage: 150 MG, UNK
     Route: 041
  13. CARBOPLATIN. [Suspect]
     Active Substance: CARBOPLATIN
     Indication: NON-SMALL CELL LUNG CANCER
     Dosage: UNK
     Route: 041
  14. ABRAXANE [Suspect]
     Active Substance: PACLITAXEL
     Dosage: 100 MG/M2, QD
     Route: 041
     Dates: start: 20170502
  15. PHENYTOIN. [Concomitant]
     Active Substance: PHENYTOIN
     Dosage: 100 MILLIGRAM
     Route: 048
  16. TUTOFUSIN [Concomitant]
     Indication: URINARY RETENTION
     Dosage: 1000 ML, UNK
     Route: 041

REACTIONS (3)
  - Polyneuropathy [Unknown]
  - Back pain [Recovered/Resolved]
  - Dry skin [Unknown]

NARRATIVE: CASE EVENT DATE: 20170418
